FAERS Safety Report 11933073 (Version 2)
Quarter: 2016Q2

REPORT INFORMATION
  Report Type: Report from Study
  Country: US (occurrence: US)
  Receive Date: 20160121
  Receipt Date: 20160609
  Transmission Date: 20160815
  Serious: Yes (Other)
  Sender: FDA-Public Use
  Company Number: US-AMGEN-USASL2016005847

PATIENT
  Age: 54 Year
  Sex: Male

DRUGS (1)
  1. ENBREL [Suspect]
     Active Substance: ETANERCEPT
     Indication: PSORIATIC ARTHROPATHY
     Dosage: UNK UNK, UNK
     Route: 065
     Dates: start: 201510

REACTIONS (11)
  - Limb operation [Unknown]
  - Arthralgia [Not Recovered/Not Resolved]
  - Back pain [Unknown]
  - Ligament operation [Unknown]
  - Tendon sheath lesion excision [Unknown]
  - Injection site pain [Unknown]
  - Joint arthroplasty [Unknown]
  - Neuralgia [Unknown]
  - Pain in extremity [Not Recovered/Not Resolved]
  - Psoriasis [Unknown]
  - Osteoarthritis [Unknown]
